FAERS Safety Report 4344889-3 (Version None)
Quarter: 2004Q2

REPORT INFORMATION
  Report Type: 
  Country: None (occurrence: None)
  Receive Date: 20040421
  Receipt Date: 20040421
  Transmission Date: 20050107
  Serious: Yes (Hospitalization)
  Sender: FDA-Public Use
  Company Number: None

PATIENT
  Age: 48 Year
  Sex: Male
  Weight: 61.2356 kg

DRUGS (5)
  1. OXALIPLATIN [Suspect]
     Indication: PANCREATIC CARCINOMA
     Dosage: 90MG/M2 Q 3 WKS IV
     Route: 042
     Dates: start: 20040210, end: 20040302
  2. DOCETAXEL [Suspect]
     Indication: PANCREATIC CARCINOMA
     Dosage: 35MG/M2 Q WK X2, ONCE WK
     Dates: start: 20040210, end: 20040316
  3. OXYCONTIN [Concomitant]
  4. ADVIL [Concomitant]
  5. OXYCODONE [Concomitant]

REACTIONS (4)
  - ACQUIRED PYLORIC STENOSIS [None]
  - DISEASE PROGRESSION [None]
  - GASTRIC NEOPLASM [None]
  - GASTRIC OUTLET OBSTRUCTION [None]
